FAERS Safety Report 4713580-3 (Version None)
Quarter: 2005Q3

REPORT INFORMATION
  Report Type: 
  Country: None (occurrence: None)
  Receive Date: 20050711
  Receipt Date: 20050706
  Transmission Date: 20060218
  Serious: Yes (Death)
  Sender: FDA-Public Use
  Company Number: 200510660BVD

PATIENT
  Age: 71 Year
  Sex: Male
  Weight: 90 kg

DRUGS (6)
  1. AVELOX [Suspect]
     Indication: BRONCHITIS
     Dosage: 400 MG, TOTAL DAILY,ORAL
     Route: 048
     Dates: start: 20050314
  2. AVELOX [Suspect]
     Indication: PURULENCE
     Dosage: 400 MG, TOTAL DAILY,ORAL
     Route: 048
     Dates: start: 20050314
  3. ALLOPURINOL [Concomitant]
  4. BISOPROLOL [Concomitant]
  5. ENALAPRIL [Concomitant]
  6. FUROSEMID  SLOW RELEASE [Concomitant]

REACTIONS (1)
  - SUDDEN DEATH [None]
